FAERS Safety Report 19690534 (Version 1)
Quarter: 2021Q3

REPORT INFORMATION
  Report Type: Spontaneous
  Country: US (occurrence: US)
  Receive Date: 20210812
  Receipt Date: 20210812
  Transmission Date: 20211014
  Serious: Yes (Other)
  Sender: FDA-Public Use
  Company Number: US-BAYER-2021-190611

PATIENT
  Sex: Female

DRUGS (2)
  1. KYLEENA [Suspect]
     Active Substance: LEVONORGESTREL
     Indication: HEAVY MENSTRUAL BLEEDING
  2. KYLEENA [Suspect]
     Active Substance: LEVONORGESTREL
     Indication: CONTRACEPTION
     Dosage: 17.5 ?G PER DAY, CONTINUOUSLY
     Route: 015

REACTIONS (6)
  - Breast pain [None]
  - Bacterial vaginosis [None]
  - Alopecia [None]
  - Genital haemorrhage [Not Recovered/Not Resolved]
  - Vulvovaginal mycotic infection [None]
  - Abdominal pain lower [None]

NARRATIVE: CASE EVENT DATE: 202107
